FAERS Safety Report 4310238-X (Version None)
Quarter: 2004Q1

REPORT INFORMATION
  Report Type: 
  Country: None (occurrence: None)
  Receive Date: 20040301
  Receipt Date: 20040301
  Transmission Date: 20041129
  Serious: Yes (Life-Threatening, Hospitalization, Disabling, Congenital Anomaly, Other)
  Sender: FDA-Public Use
  Company Number: None

PATIENT
  Age: 70 Year
  Sex: Male
  Weight: 96.1626 kg

DRUGS (1)
  1. AVELOX [Suspect]
     Indication: BRONCHITIS
     Dosage: 1 1 TIME ORAL
     Route: 048
     Dates: start: 20040127, end: 20040127

REACTIONS (8)
  - ARRHYTHMIA [None]
  - CARDIAC DISORDER [None]
  - CEREBRAL HAEMORRHAGE [None]
  - HAEMORRHAGE [None]
  - HYPOGLYCAEMIA [None]
  - PLATELET COUNT DECREASED [None]
  - RECTAL HAEMORRHAGE [None]
  - SYNCOPE [None]
